FAERS Safety Report 18705386 (Version 1)
Quarter: 2021Q1

REPORT INFORMATION
  Report Type: Spontaneous
  Country: US (occurrence: US)
  Receive Date: 20210106
  Receipt Date: 20210106
  Transmission Date: 20210419
  Serious: Yes (Life-Threatening, Hospitalization, Other)
  Sender: FDA-Public Use
  Company Number: US-HIKMA PHARMACEUTICALS USA INC.-US-H14001-21-53215

PATIENT
  Age: 27 Year
  Sex: Male

DRUGS (5)
  1. TOCILIZUMAB. [Suspect]
     Active Substance: TOCILIZUMAB
     Indication: TAKAYASU^S ARTERITIS
     Route: 042
  2. PLAVIX [Concomitant]
     Active Substance: CLOPIDOGREL BISULFATE
     Indication: CEREBROVASCULAR ACCIDENT
     Dosage: UNKNOWN
     Route: 065
  3. CILOSTAZOL. [Concomitant]
     Active Substance: CILOSTAZOL
     Indication: CEREBROVASCULAR ACCIDENT
     Dosage: UNKNOWN
     Route: 065
  4. PREDNISONE. [Suspect]
     Active Substance: PREDNISONE
     Indication: IRITIS
     Dosage: HIGH DOSE
     Route: 065
  5. IBUPROFEN. [Concomitant]
     Active Substance: IBUPROFEN
     Indication: PRODUCT USED FOR UNKNOWN INDICATION
     Dosage: UNKNOWN
     Route: 065

REACTIONS (3)
  - Lower gastrointestinal haemorrhage [Recovered/Resolved]
  - Large intestinal ulcer [Recovered/Resolved]
  - Oesophagitis [Recovered/Resolved]
